APPROVED DRUG PRODUCT: FAMOTIDINE
Active Ingredient: FAMOTIDINE
Strength: 40MG/5ML
Dosage Form/Route: FOR SUSPENSION;ORAL
Application: A090440 | Product #001 | TE Code: AB
Applicant: LUPIN LTD
Approved: Jun 29, 2010 | RLD: No | RS: No | Type: RX